FAERS Safety Report 20047432 (Version 3)
Quarter: 2021Q4

REPORT INFORMATION
  Report Type: Spontaneous
  Country: PT (occurrence: PT)
  Receive Date: 20211109
  Receipt Date: 20211215
  Transmission Date: 20220304
  Serious: Yes (Hospitalization, Other)
  Sender: FDA-Public Use
  Company Number: PT-AUROBINDO-AUR-APL-2021-045718

PATIENT
  Age: 69 Year
  Sex: Female

DRUGS (1)
  1. VALPROIC ACID [Suspect]
     Active Substance: VALPROIC ACID
     Indication: Epilepsy
     Dosage: UNK
     Route: 048

REACTIONS (10)
  - Metabolic encephalopathy [Recovered/Resolved]
  - Acute respiratory failure [Recovered/Resolved]
  - Cerebrovascular disorder [Recovering/Resolving]
  - Hypoxia [Recovered/Resolved]
  - Parkinsonian gait [Recovering/Resolving]
  - Electrocardiogram T wave inversion [Recovering/Resolving]
  - Psychomotor retardation [Recovering/Resolving]
  - Altered state of consciousness [Recovering/Resolving]
  - Resting tremor [Recovering/Resolving]
  - Respiratory failure [Recovered/Resolved]
